FAERS Safety Report 14425838 (Version 1)
Quarter: 2018Q1

REPORT INFORMATION
  Report Type: Spontaneous
  Country: US (occurrence: US)
  Receive Date: 20180123
  Receipt Date: 20180123
  Transmission Date: 20180509
  Serious: Yes (Life-Threatening, Disabling)
  Sender: FDA-Public Use
  Company Number: None

PATIENT
  Age: 47 Year
  Sex: Female
  Weight: 92.71 kg

DRUGS (7)
  1. CELEXA [Suspect]
     Active Substance: CITALOPRAM HYDROBROMIDE
     Indication: EUPHORIC MOOD
     Dosage: 20 MG QTY 30 ONEPILL DAYLEY BY MOUTH EREY MORNING
     Route: 048
     Dates: start: 20150415, end: 20171211
  2. CELEXA [Suspect]
     Active Substance: CITALOPRAM HYDROBROMIDE
     Indication: BIPOLAR DISORDER
     Dosage: 20 MG QTY 30 ONEPILL DAYLEY BY MOUTH EREY MORNING
     Route: 048
     Dates: start: 20150415, end: 20171211
  3. CELEXA [Suspect]
     Active Substance: CITALOPRAM HYDROBROMIDE
     Indication: ANXIETY
     Dosage: 20 MG QTY 30 ONEPILL DAYLEY BY MOUTH EREY MORNING
     Route: 048
     Dates: start: 20150415, end: 20171211
  4. CELEXA [Suspect]
     Active Substance: CITALOPRAM HYDROBROMIDE
     Indication: JUDGEMENT IMPAIRED
     Dosage: 20 MG QTY 30 ONEPILL DAYLEY BY MOUTH EREY MORNING
     Route: 048
     Dates: start: 20150415, end: 20171211
  5. IBUPROFEN. [Concomitant]
     Active Substance: IBUPROFEN
  6. MULTIVITAMIN [Concomitant]
     Active Substance: VITAMINS
  7. CELEXA [Suspect]
     Active Substance: CITALOPRAM HYDROBROMIDE
     Indication: MAJOR DEPRESSION
     Dosage: 20 MG QTY 30 ONEPILL DAYLEY BY MOUTH EREY MORNING
     Route: 048
     Dates: start: 20150415, end: 20171211

REACTIONS (14)
  - Dry mouth [None]
  - Dizziness [None]
  - Nausea [None]
  - Somnolence [None]
  - Depressed mood [None]
  - Insomnia [None]
  - Pyrexia [None]
  - Muscle spasms [None]
  - Hyperhidrosis [None]
  - Tremor [None]
  - Constipation [None]
  - Musculoskeletal stiffness [None]
  - Confusional state [None]
  - Feeling abnormal [None]
